FAERS Safety Report 6903122-6 (Version None)
Quarter: 2010Q3

REPORT INFORMATION
  Report Type: 
  Country: None (occurrence: None)
  Receive Date: 20100803
  Receipt Date: 20080711
  Transmission Date: 20110219
  Serious: No
  Sender: FDA-Public Use
  Company Number: US-PFIZER INC-2008058322

PATIENT
  Sex: Female
  Weight: 50 kg

DRUGS (6)
  1. LYRICA [Suspect]
     Indication: NEURALGIA
     Route: 048
     Dates: start: 20080707
  2. SYNTHROID [Concomitant]
     Indication: HYPERTHYROIDISM
     Route: 048
  3. ZANAFLEX [Concomitant]
     Route: 048
  4. YASMIN [Concomitant]
     Route: 048
  5. CENTRUM [Concomitant]
     Route: 048
  6. PERCOCET [Concomitant]
     Route: 048

REACTIONS (3)
  - EYE PAIN [None]
  - LACRIMATION INCREASED [None]
  - VISION BLURRED [None]
